FAERS Safety Report 8615402-7 (Version None)
Quarter: 2012Q3

REPORT INFORMATION
  Report Type: 
  Country: None (occurrence: None)
  Receive Date: 20120823
  Receipt Date: 20120814
  Transmission Date: 20120928
  Serious: Yes (Other)
  Sender: FDA-Public Use
  Company Number: CA-JNJFOC-20120806931

PATIENT
  Sex: Male

DRUGS (8)
  1. REMICADE [Suspect]
     Route: 042
     Dates: start: 20081021
  2. EFFEXOR [Concomitant]
     Route: 065
  3. REMICADE [Suspect]
     Indication: CROHN'S DISEASE
     Dosage: 30TH INFUSION
     Route: 042
     Dates: start: 20120703
  4. DEMEROL [Concomitant]
     Route: 065
  5. METFORMIN [Concomitant]
     Route: 065
  6. METOPROLOL TARTRATE [Concomitant]
     Route: 065
  7. PERINDOPRIL ERBUMINE [Concomitant]
     Route: 065
  8. VITAMIN B-12 [Concomitant]
     Route: 065

REACTIONS (2)
  - EYE PAIN [None]
  - EYE SWELLING [None]
